FAERS Safety Report 18257697 (Version 1)
Quarter: 2020Q3

REPORT INFORMATION
  Report Type: Spontaneous
  Country: BD (occurrence: BD)
  Receive Date: 20200911
  Receipt Date: 20200911
  Transmission Date: 20201103
  Serious: Yes (Congenital Anomaly, Other)
  Sender: FDA-Public Use
  Company Number: BD-AMNEAL PHARMACEUTICALS-2020-AMRX-02766

PATIENT
  Age: 3 Day
  Sex: Male

DRUGS (1)
  1. PROGESTERONE. [Suspect]
     Active Substance: PROGESTERONE
     Indication: PROPHYLAXIS OF ABORTION
     Dosage: UNK
     Route: 064

REACTIONS (6)
  - Ankyloglossia congenital [Recovering/Resolving]
  - Patent ductus arteriosus [Not Recovered/Not Resolved]
  - Foetal exposure during pregnancy [Unknown]
  - Chordee [Not Recovered/Not Resolved]
  - Cleft palate [Not Recovered/Not Resolved]
  - Penoscrotal transposition [Not Recovered/Not Resolved]
